FAERS Safety Report 6251967-0 (Version None)
Quarter: 2009Q2

REPORT INFORMATION
  Report Type: 
  Country: None (occurrence: None)
  Receive Date: 20090630
  Receipt Date: 20090618
  Transmission Date: 20091009
  Serious: Yes (Other)
  Sender: FDA-Public Use
  Company Number: US-ELI_LILLY_AND_COMPANY-US200906004691

PATIENT
  Sex: Female

DRUGS (5)
  1. CYMBALTA [Suspect]
     Indication: DEPRESSION
     Dosage: UNK, UNK
     Dates: start: 20070101
  2. CYMBALTA [Suspect]
     Dosage: 60 MG, 2/D
     Dates: start: 20080101
  3. LYRICA [Concomitant]
  4. IBUPROFEN [Concomitant]
  5. HORMONES NOS [Concomitant]
     Dates: end: 20080601

REACTIONS (3)
  - BREAST CANCER [None]
  - DRUG INTERACTION [None]
  - FIBROMYALGIA [None]
